FAERS Safety Report 18992404 (Version 1)
Quarter: 2021Q1

REPORT INFORMATION
  Report Type: Spontaneous
  Country: IN (occurrence: IN)
  Receive Date: 20210310
  Receipt Date: 20210310
  Transmission Date: 20210420
  Serious: Yes (Death, Hospitalization, Other)
  Sender: FDA-Public Use
  Company Number: IN-MYLANLABS-2021M1014289

PATIENT
  Age: 53 Year
  Sex: Male

DRUGS (4)
  1. TACROLIMUS. [Suspect]
     Active Substance: TACROLIMUS
     Indication: IMMUNOSUPPRESSANT DRUG THERAPY
     Route: 065
  2. MYCOPHENOLATE MOFETIL. [Suspect]
     Active Substance: MYCOPHENOLATE MOFETIL
     Indication: IMMUNOSUPPRESSANT DRUG THERAPY
     Route: 065
  3. POSACONAZOLE [Suspect]
     Active Substance: POSACONAZOLE
     Indication: MUCORMYCOSIS
     Route: 065
  4. THYMOGLOBULIN [Suspect]
     Active Substance: LAPINE T-LYMPHOCYTE IMMUNE GLOBULIN
     Indication: IMMUNOSUPPRESSANT DRUG THERAPY
     Dosage: UNK
     Route: 065

REACTIONS (14)
  - Pneumonia [Fatal]
  - Acinetobacter infection [Fatal]
  - Drug ineffective [Fatal]
  - Cytomegalovirus infection [Fatal]
  - Respiratory distress [Fatal]
  - Mucormycosis [Fatal]
  - Brain abscess [Fatal]
  - Pneumopericardium [Fatal]
  - Aspergillus infection [Fatal]
  - Hyperglycaemia [Unknown]
  - Pneumonia escherichia [Fatal]
  - Burkholderia cepacia complex infection [Fatal]
  - Sepsis [Fatal]
  - Cardiac arrest [Fatal]
